FAERS Safety Report 7564548-3 (Version None)
Quarter: 2011Q2

REPORT INFORMATION
  Report Type: 
  Country: None (occurrence: None)
  Receive Date: 20110622
  Receipt Date: 20100625
  Transmission Date: 20111010
  Serious: Yes (Hospitalization, Other)
  Sender: FDA-Public Use
  Company Number: US-MYLANLABS-2010S1009057

PATIENT
  Age: 71 Year
  Sex: Female

DRUGS (10)
  1. LASIX [Concomitant]
  2. AVELOX [Concomitant]
  3. OMEPRAZOLE [Concomitant]
  4. CELEBREX [Concomitant]
  5. ALBUTEROL SULFATE AUTOHALER [Concomitant]
  6. SEROQUEL [Concomitant]
  7. POTASSIUM CHLORIDE [Concomitant]
  8. DILANTIN [Concomitant]
  9. CLOZAPINE [Suspect]
     Indication: SCHIZOPHRENIA
     Dosage: 1/2 TABLET
     Dates: start: 20070614, end: 20100501
  10. ZEBETA [Concomitant]

REACTIONS (1)
  - GRAND MAL CONVULSION [None]
